FAERS Safety Report 24685559 (Version 1)
Quarter: 2024Q4

REPORT INFORMATION
  Report Type: Spontaneous
  Country: CN (occurrence: CN)
  Receive Date: 20241202
  Receipt Date: 20241202
  Transmission Date: 20250114
  Serious: Yes (Other)
  Sender: B BRAUN
  Company Number: CN-B.Braun Medical Inc.-2166295

PATIENT
  Age: 60 Year
  Sex: Male
  Weight: 44 kg

DRUGS (1)
  1. NUTRILIPID I.V. FAT EMULSION [Suspect]
     Active Substance: SOYBEAN OIL
     Indication: Nutritional supplementation

REACTIONS (2)
  - Myelosuppression [Not Recovered/Not Resolved]
  - Thrombocytopenia [Not Recovered/Not Resolved]
